FAERS Safety Report 5164831-5 (Version None)
Quarter: 2006Q4

REPORT INFORMATION
  Report Type: 
  Country: None (occurrence: None)
  Receive Date: 20061124
  Receipt Date: 20061113
  Transmission Date: 20070319
  Serious: Yes (Life-Threatening, Other)
  Sender: FDA-Public Use
  Company Number: 149864ISR

PATIENT
  Age: 10 Year
  Sex: Male
  Weight: 30 kg

DRUGS (2)
  1. VENTOLIN [Suspect]
     Dosage: RESPIRATORY (INHALATION)
     Route: 055
  2. IPRATROPIUM BROMIDE [Suspect]
     Dosage: RESPIRATORY (INHALATION)
     Route: 055

REACTIONS (18)
  - APHASIA [None]
  - BLOOD PH DECREASED [None]
  - BRADYCARDIA [None]
  - CONDITION AGGRAVATED [None]
  - COUGH [None]
  - GENERAL PHYSICAL HEALTH DETERIORATION [None]
  - MEAN ARTERIAL PRESSURE DECREASED [None]
  - MYDRIASIS [None]
  - NO THERAPEUTIC RESPONSE [None]
  - PCO2 INCREASED [None]
  - PO2 DECREASED [None]
  - PO2 INCREASED [None]
  - PUPILLARY REFLEX IMPAIRED [None]
  - PUPILS UNEQUAL [None]
  - RESPIRATORY DISTRESS [None]
  - RHINORRHOEA [None]
  - TACHYCARDIA [None]
  - WHEEZING [None]
